FAERS Safety Report 5375046-X (Version None)
Quarter: 2007Q2

REPORT INFORMATION
  Report Type: 
  Country: None (occurrence: None)
  Receive Date: 20070629
  Receipt Date: 20070626
  Transmission Date: 20071010
  Serious: Yes (Hospitalization, Other)
  Sender: FDA-Public Use
  Company Number: DE-ABBOTT-07P-062-0372708-00

PATIENT
  Age: 48 Year
  Sex: Male
  Weight: 88 kg

DRUGS (1)
  1. SIBUTRAMINE [Suspect]
     Indication: WEIGHT CONTROL

REACTIONS (5)
  - AGITATION [None]
  - ANXIETY [None]
  - DEPRESSED MOOD [None]
  - HALLUCINATION, AUDITORY [None]
  - PSYCHOTIC DISORDER [None]
